FAERS Safety Report 19448704 (Version 1)
Quarter: 2021Q2

REPORT INFORMATION
  Report Type: Spontaneous
  Country: JP (occurrence: JP)
  Receive Date: 20210622
  Receipt Date: 20210622
  Transmission Date: 20210717
  Serious: Yes (Other)
  Sender: FDA-Public Use
  Company Number: JP-ELI_LILLY_AND_COMPANY-JP202105011556

PATIENT
  Age: 73 Year
  Sex: Female

DRUGS (12)
  1. AMLODIPINE BESILATE [Concomitant]
     Active Substance: AMLODIPINE BESYLATE
     Dosage: 5 MG
     Route: 048
     Dates: start: 20210416
  2. TERIBONE [Concomitant]
     Active Substance: TERIPARATIDE ACETATE
     Dosage: 28.2 UG, 2/W
     Route: 058
     Dates: start: 20200416
  3. LANSOPRAZOLE. [Concomitant]
     Active Substance: LANSOPRAZOLE
     Dosage: 15 MG
     Route: 048
     Dates: start: 20200416
  4. EDIROL [Concomitant]
     Active Substance: ELDECALCITOL
     Dosage: 0.75 UG
     Route: 048
     Dates: start: 20210325
  5. EVAMYL [Concomitant]
     Active Substance: LORMETAZEPAM
     Dosage: 1 MG
     Dates: start: 20210416
  6. TICLOPIDINE HYDROCHLORIDE. [Concomitant]
     Active Substance: TICLOPIDINE HYDROCHLORIDE
     Dosage: 100 MG
     Dates: start: 20210416
  7. REBAMIPIDE [Concomitant]
     Active Substance: REBAMIPIDE
     Dosage: 100 MG
     Route: 048
     Dates: start: 20201119
  8. ATORVASTATIN CALCIUM. [Concomitant]
     Active Substance: ATORVASTATIN CALCIUM
     Dosage: 5 MG
     Dates: start: 20210416
  9. ETIZOLAM [Concomitant]
     Active Substance: ETIZOLAM
     Dosage: 1.0 MG
     Dates: start: 20210416
  10. AMLODIPINE BESILATE;CANDESARTAN CILEXETIL [Concomitant]
     Dosage: UNK
     Dates: start: 20210416
  11. DULOXETINE HYDROCHLORIDE. [Suspect]
     Active Substance: DULOXETINE HYDROCHLORIDE
     Indication: BACK PAIN
     Dosage: 20 MG, DAILY
     Route: 048
     Dates: start: 20210520, end: 20210521
  12. LOXONIN [Concomitant]
     Active Substance: LOXOPROFEN SODIUM
     Dosage: 60 MG
     Route: 048
     Dates: start: 20201119

REACTIONS (3)
  - Oral mucosa erosion [Recovered/Resolved]
  - Nausea [Recovered/Resolved]
  - Dizziness [Recovered/Resolved]

NARRATIVE: CASE EVENT DATE: 20210520
